FAERS Safety Report 22628713 (Version 4)
Quarter: 2024Q3

REPORT INFORMATION
  Report Type: Report from Study
  Country: JP (occurrence: None)
  Receive Date: 20230622
  Receipt Date: 20240719
  Transmission Date: 20241017
  Serious: Yes (Hospitalization, Other)
  Sender: ASTRAZENECA
  Company Number: 2023A139412

PATIENT
  Age: 35 Year
  Sex: Female
  Weight: 50 kg

DRUGS (8)
  1. SAPHNELO [Suspect]
     Active Substance: ANIFROLUMAB-FNIA
     Indication: Systemic lupus erythematosus
     Route: 041
     Dates: start: 20230220, end: 20231212
  2. SAPHNELO [Suspect]
     Active Substance: ANIFROLUMAB-FNIA
     Indication: Systemic lupus erythematosus
     Route: 041
     Dates: start: 20240116
  3. PREDNISOLONE [Suspect]
     Active Substance: PREDNISOLONE
  4. PROGRAF [Suspect]
     Active Substance: TACROLIMUS
  5. BENLYSTA [Concomitant]
     Active Substance: BELIMUMAB
  6. UNSPECIFIED INGREDIENT [Concomitant]
     Active Substance: UNSPECIFIED INGREDIENT
     Dosage: DOSE UNKNOWN
     Route: 048
  7. HYDROXYCHLOROQUINE SULFATE [Concomitant]
     Active Substance: HYDROXYCHLOROQUINE SULFATE
     Dosage: DOSE UNKNOWN
  8. TACROLIMUS [Concomitant]
     Active Substance: TACROLIMUS
     Dosage: DOSE UNKNOWN

REACTIONS (3)
  - Gastroenteritis [Recovered/Resolved]
  - Nasopharyngitis [Recovered/Resolved]
  - COVID-19 [Recovered/Resolved]

NARRATIVE: CASE EVENT DATE: 20230401
